FAERS Safety Report 21109044 (Version 7)
Quarter: 2023Q1

REPORT INFORMATION
  Report Type: Spontaneous
  Country: ES (occurrence: ES)
  Receive Date: 20220721
  Receipt Date: 20230202
  Transmission Date: 20230417
  Serious: Yes (Death, Hospitalization, Other)
  Sender: FDA-Public Use
  Company Number: ES-BRISTOL-MYERS SQUIBB COMPANY-2022-071848

PATIENT
  Age: 52 Year
  Sex: Male
  Weight: 101 kg

DRUGS (6)
  1. AZACITIDINE [Suspect]
     Active Substance: AZACITIDINE
     Indication: Acute myeloid leukaemia
     Dosage: 166 MILLIGRAM, QD
     Route: 042
     Dates: start: 20220420
  2. AZACITIDINE [Suspect]
     Active Substance: AZACITIDINE
     Dosage: 162 MILLIGRAM, QD
     Route: 042
     Dates: start: 20220529
  3. BGB-11417 [Suspect]
     Active Substance: BGB-11417
     Indication: Acute myeloid leukaemia
     Route: 048
     Dates: start: 20220420
  4. BGB-11417 [Suspect]
     Active Substance: BGB-11417
     Route: 048
     Dates: start: 20220523
  5. BGB-11417 [Suspect]
     Active Substance: BGB-11417
     Dates: start: 20220601
  6. PIPERACILLIN SODIUM\TAZOBACTAM SODIUM [Concomitant]
     Active Substance: PIPERACILLIN SODIUM\TAZOBACTAM SODIUM
     Indication: Pyrexia
     Route: 042

REACTIONS (2)
  - Off label use [Unknown]
  - Pneumonia klebsiella [Fatal]

NARRATIVE: CASE EVENT DATE: 20220612
